FAERS Safety Report 6966000-2 (Version None)
Quarter: 2010Q3

REPORT INFORMATION
  Report Type: 
  Country: None (occurrence: None)
  Receive Date: 20100903
  Receipt Date: 20100823
  Transmission Date: 20110219
  Serious: Yes (Other)
  Sender: FDA-Public Use
  Company Number: JP-AMGEN-US432455

PATIENT
  Age: 67 Year
  Sex: Female

DRUGS (4)
  1. ENBREL [Suspect]
     Indication: RHEUMATOID ARTHRITIS
     Route: 058
     Dates: start: 20100325, end: 20100803
  2. ENBREL [Suspect]
     Dosage: DOSE AND FREQUENCY NOT SPECIFIED
     Route: 058
     Dates: start: 20100801
  3. RHEUMATREX [Suspect]
     Indication: RHEUMATOID ARTHRITIS
     Route: 048
     Dates: start: 20080718, end: 20100803
  4. RHEUMATREX [Suspect]
     Dosage: DOSE AND FREQUENCY NOT SPECIFIED
     Route: 048
     Dates: start: 20100801

REACTIONS (2)
  - LYMPHADENOPATHY MEDIASTINAL [None]
  - SYSTEMIC LUPUS ERYTHEMATOSUS [None]
